FAERS Safety Report 13274101 (Version 1)
Quarter: 2017Q1

REPORT INFORMATION
  Report Type: Spontaneous
  Country: US (occurrence: US)
  Receive Date: 20170227
  Receipt Date: 20170227
  Transmission Date: 20170428
  Serious: Yes (Other)
  Sender: FDA-Public Use
  Company Number: US-BAYER-2017-035231

PATIENT
  Age: 53 Year
  Sex: Male
  Weight: 154 kg

DRUGS (2)
  1. AFRIN NO DRIP SEVERE CONGESTION [Suspect]
     Active Substance: OXYMETAZOLINE HYDROCHLORIDE
     Indication: NASOPHARYNGITIS
  2. AFRIN NO DRIP SEVERE CONGESTION [Suspect]
     Active Substance: OXYMETAZOLINE HYDROCHLORIDE
     Indication: HYPERSENSITIVITY
     Dosage: UNK
     Route: 055
     Dates: start: 1981

REACTIONS (6)
  - Choking [Unknown]
  - Product use issue [Unknown]
  - Product container issue [None]
  - Product use issue [Unknown]
  - Drug ineffective [Unknown]
  - Drug tolerance [None]

NARRATIVE: CASE EVENT DATE: 1981
